FAERS Safety Report 6515550-1 (Version None)
Quarter: 2009Q4

REPORT INFORMATION
  Report Type: 
  Country: None (occurrence: None)
  Receive Date: 20091223
  Receipt Date: 20091217
  Transmission Date: 20100525
  Serious: Yes (Death, Life-Threatening)
  Sender: FDA-Public Use
  Company Number: GB-BRISTOL-MYERS SQUIBB COMPANY-14831135

PATIENT
  Age: 62 Year
  Sex: Female

DRUGS (10)
  1. CISPLATIN [Suspect]
     Indication: MEDIASTINAL DISORDER
     Dosage: ON DAYS 1 AND 2
  2. CISPLATIN [Suspect]
     Indication: CHORIOCARCINOMA
     Dosage: ON DAYS 1 AND 2
  3. CYCLOPHOSPHAMIDE [Suspect]
     Indication: CHORIOCARCINOMA
  4. ETOPOSIDE [Suspect]
     Indication: MEDIASTINAL DISORDER
     Dosage: DAYS 1 AND 2
  5. ETOPOSIDE [Suspect]
     Indication: CHORIOCARCINOMA
     Dosage: DAYS 1 AND 2
  6. ACTINOMYCIN D [Suspect]
     Indication: CHORIOCARCINOMA
     Route: 042
  7. METHOTREXATE [Suspect]
     Indication: CHORIOCARCINOMA
  8. ONCOVIN [Suspect]
     Indication: CHORIOCARCINOMA
  9. BECLOMETHASONE DIPROPIONATE [Concomitant]
     Indication: CHRONIC OBSTRUCTIVE PULMONARY DISEASE
     Route: 055
  10. ALBUTEROL [Concomitant]
     Indication: CHRONIC OBSTRUCTIVE PULMONARY DISEASE
     Route: 055

REACTIONS (6)
  - GENERAL PHYSICAL HEALTH DETERIORATION [None]
  - LIVER FUNCTION TEST ABNORMAL [None]
  - METASTASES TO LUNG [None]
  - NEUTROPENIC SEPSIS [None]
  - RENAL FAILURE ACUTE [None]
  - TOXIC EPIDERMAL NECROLYSIS [None]
